FAERS Safety Report 7135411-7 (Version None)
Quarter: 2010Q4

REPORT INFORMATION
  Report Type: 
  Country: None (occurrence: None)
  Receive Date: 20101203
  Receipt Date: 20101126
  Transmission Date: 20110411
  Serious: Yes (Other)
  Sender: FDA-Public Use
  Company Number: PHHO2010AU18061

PATIENT

DRUGS (3)
  1. STI571/CGP57148B T35717+TAB [Suspect]
     Indication: CHRONIC MYELOID LEUKAEMIA
     Dosage: 600MG DAILY DOSE
     Route: 048
     Dates: start: 20101012, end: 20101027
  2. STI571/CGP57148B T35717+TAB [Suspect]
     Dosage: 400MG DAILY
     Route: 048
     Dates: start: 20101109
  3. STI571/CGP57148B T35717+TAB [Suspect]
     Dosage: UNK
     Route: 048
     Dates: start: 20101126

REACTIONS (1)
  - PANCREATIC ENZYMES INCREASED [None]
